FAERS Safety Report 8836930 (Version 2)
Quarter: 2012Q4

REPORT INFORMATION
  Report Type: 
  Country: JP (occurrence: JP)
  Receive Date: 20121012
  Receipt Date: 20121118
  Transmission Date: 20130627
  Serious: Yes (Hospitalization, Other)
  Sender: FDA-Public Use
  Company Number: JP-AMGEN-JPNSP2012064330

PATIENT
  Age: 75 Year
  Sex: Female
  Weight: 48.8 kg

DRUGS (2)
  1. ENBREL [Suspect]
     Indication: RHEUMATOID ARTHRITIS
     Dosage: 25 mg, weekly
     Route: 058
     Dates: start: 2002, end: 20110916
  2. METHOTREXATE [Concomitant]
     Dosage: UNK

REACTIONS (1)
  - Glomerulonephritis rapidly progressive [Recovering/Resolving]
